FAERS Safety Report 4562034-6 (Version None)
Quarter: 2005Q2

REPORT INFORMATION
  Report Type: 
  Country: None (occurrence: None)
  Receive Date: 20050125
  Receipt Date: 20050125
  Transmission Date: 20051028
  Serious: No
  Sender: FDA-Public Use
  Company Number: None

PATIENT
  Sex: Male
  Weight: 98 kg

DRUGS (8)
  1. ZOCOR [Suspect]
     Indication: HYPERLIPIDAEMIA
     Dosage: 20 MG   QHS   ORAL
     Route: 048
     Dates: start: 20050103, end: 20050113
  2. ATENOLOL [Concomitant]
  3. NITROGLYCERIN [Concomitant]
  4. CLARITIN [Concomitant]
  5. VICODIN [Concomitant]
  6. NAPROXEN [Concomitant]
  7. METFORMIN HCL [Concomitant]
  8. PRILOSEC [Concomitant]

REACTIONS (1)
  - MYALGIA [None]
